FAERS Safety Report 5466257-3 (Version None)
Quarter: 2007Q3

REPORT INFORMATION
  Report Type: 
  Country: None (occurrence: None)
  Receive Date: 20070924
  Receipt Date: 20070912
  Transmission Date: 20080115
  Serious: Yes (Hospitalization, Disabling, Other)
  Sender: FDA-Public Use
  Company Number: US-PFIZER INC-2007077226

PATIENT
  Sex: Female
  Weight: 42 kg

DRUGS (3)
  1. LYRICA [Suspect]
     Indication: NEUROPATHY
  2. GABAPENTIN [Suspect]
     Indication: NEUROPATHY
  3. INSULIN [Concomitant]

REACTIONS (5)
  - ACTIVITIES OF DAILY LIVING IMPAIRED [None]
  - CEREBROVASCULAR ACCIDENT [None]
  - DISABILITY [None]
  - DYSPNOEA [None]
  - MONOPLEGIA [None]
